FAERS Safety Report 22383411 (Version 3)
Quarter: 2025Q2

REPORT INFORMATION
  Report Type: Report from Study
  Country: IN (occurrence: None)
  Receive Date: 20230530
  Receipt Date: 20250421
  Transmission Date: 20250717
  Serious: Yes (Death, Hospitalization)
  Sender: INCYTE
  Company Number: IN-002147023-NVSC2022IN039807

PATIENT
  Age: 47 Year

DRUGS (8)
  1. RUXOLITINIB [Suspect]
     Active Substance: RUXOLITINIB
     Indication: Primary myelofibrosis
  2. RUXOLITINIB [Suspect]
     Active Substance: RUXOLITINIB
     Dosage: 5 MG, BID
     Route: 065
  3. RUXOLITINIB [Suspect]
     Active Substance: RUXOLITINIB
     Dosage: 5 MG, QD
     Route: 065
  4. RUXOLITINIB [Suspect]
     Active Substance: RUXOLITINIB
     Dosage: 10 MG, BID
  5. RUXOLITINIB [Suspect]
     Active Substance: RUXOLITINIB
     Dosage: 10 MG, BID
  6. ASPIRIN [Concomitant]
     Active Substance: ASPIRIN
     Indication: Product used for unknown indication
     Dosage: 75 MG, QD
  7. DANOGEN [Concomitant]
     Indication: Product used for unknown indication
     Dosage: 200 MG, BID
  8. THALIDE [Concomitant]
     Indication: Product used for unknown indication
     Dosage: 100 MG, QD

REACTIONS (8)
  - Anaemia [Unknown]
  - Off label use [Unknown]
  - Asthenia [Unknown]
  - White blood cell count increased [Unknown]
  - Pyrexia [Unknown]
  - Haemoglobin decreased [Unknown]
  - General physical health deterioration [Fatal]
  - Weight decreased [Unknown]
